FAERS Safety Report 7122938-7 (Version None)
Quarter: 2010Q4

REPORT INFORMATION
  Report Type: 
  Country: None (occurrence: None)
  Receive Date: 20101124
  Receipt Date: 20101118
  Transmission Date: 20110411
  Serious: Yes (Hospitalization)
  Sender: FDA-Public Use
  Company Number: US-GENENTECH-309997

PATIENT
  Sex: Male
  Weight: 95.238 kg

DRUGS (3)
  1. RITUXAN [Suspect]
     Indication: NON-HODGKIN'S LYMPHOMA
     Dosage: UNK
     Route: 042
     Dates: start: 20020101, end: 20090101
  2. RITUXAN [Suspect]
     Dosage: UNK
     Route: 042
     Dates: start: 20100101, end: 20101007
  3. CHEMOTHERAPY (UNK INGREDIENTS) [Concomitant]
     Indication: NON-HODGKIN'S LYMPHOMA

REACTIONS (3)
  - DISEASE PROGRESSION [None]
  - GAIT DISTURBANCE [None]
  - PROGRESSIVE MULTIFOCAL LEUKOENCEPHALOPATHY [None]
